FAERS Safety Report 4778140-7 (Version None)
Quarter: 2005Q3

REPORT INFORMATION
  Report Type: 
  Country: None (occurrence: None)
  Receive Date: 20050922
  Receipt Date: 20050909
  Transmission Date: 20060218
  Serious: Yes (Other)
  Sender: FDA-Public Use
  Company Number: 2005126211

PATIENT
  Sex: Male

DRUGS (1)
  1. UNISOM [Suspect]
     Indication: INSOMNIA
     Dosage: 16 TABS IN 3 HOURS, ORAL
     Route: 048
     Dates: start: 20050909, end: 20050909

REACTIONS (2)
  - ABNORMAL BEHAVIOUR [None]
  - OVERDOSE [None]
